FAERS Safety Report 10636290 (Version 1)
Quarter: 2014Q4

REPORT INFORMATION
  Report Type: Spontaneous
  Country: US (occurrence: None)
  Receive Date: 20141204
  Receipt Date: 20141204
  Transmission Date: 20150529
  Serious: No
  Sender: FDA-Public Use
  Company Number: None

PATIENT

DRUGS (2)
  1. CARDENE [Suspect]
     Active Substance: NICARDIPINE HYDROCHLORIDE
     Dosage: INJECTABLE INTRAVENOUS 40 MG IN 200 ML
     Route: 042
  2. NEXTERONE [Suspect]
     Active Substance: AMIODARONE HYDROCHLORIDE
     Dosage: INJECTABLE INTRAVENOUS 360 MG/200 ML 1 GALAXY SINGLE-DOSE
     Route: 042

REACTIONS (3)
  - Circumstance or information capable of leading to medication error [None]
  - Product packaging confusion [None]
  - Product packaging issue [None]
